FAERS Safety Report 16937475 (Version 1)
Quarter: 2019Q4

REPORT INFORMATION
  Report Type: Spontaneous
  Country: GB (occurrence: GB)
  Receive Date: 20191018
  Receipt Date: 20191018
  Transmission Date: 20200122
  Serious: Yes (Other)
  Sender: FDA-Public Use
  Company Number: GB-MYLANLABS-2019M1097847

PATIENT
  Age: 67 Year
  Sex: Female
  Weight: 63.04 kg

DRUGS (1)
  1. TIMOLOL MYLAN [Suspect]
     Active Substance: TIMOLOL
     Indication: GLAUCOMA
     Dosage: UNK UNK, BID (TWICE DAILY)
     Dates: start: 201811, end: 20190804

REACTIONS (4)
  - Palpitations [Unknown]
  - Depression [Unknown]
  - Lethargy [Unknown]
  - Anxiety [Unknown]
